FAERS Safety Report 9118635 (Version 2)
Quarter: 2013Q2

REPORT INFORMATION
  Report Type: Spontaneous
  Country: US (occurrence: US)
  Receive Date: 20130226
  Receipt Date: 20130422
  Transmission Date: 20140414
  Serious: No
  Sender: FDA-Public Use
  Company Number: US-BIOGENIDEC-2013BI015437

PATIENT
  Age: 33 Year
  Sex: Female

DRUGS (1)
  1. AVONEX [Suspect]
     Indication: MULTIPLE SCLEROSIS
     Route: 030
     Dates: start: 20130111

REACTIONS (11)
  - Hallucination [Recovered/Resolved with Sequelae]
  - General symptom [Recovered/Resolved with Sequelae]
  - Anger [Recovered/Resolved with Sequelae]
  - Irritability [Not Recovered/Not Resolved]
  - Influenza like illness [Recovered/Resolved with Sequelae]
  - Chills [Recovered/Resolved with Sequelae]
  - Headache [Recovered/Resolved with Sequelae]
  - Feeling abnormal [Recovered/Resolved with Sequelae]
  - Pruritus generalised [Recovered/Resolved with Sequelae]
  - Insomnia [Recovered/Resolved with Sequelae]
  - Fatigue [Not Recovered/Not Resolved]
